FAERS Safety Report 4524354-0 (Version None)
Quarter: 2004Q4

REPORT INFORMATION
  Report Type: 
  Country: None (occurrence: None)
  Receive Date: 20041119
  Receipt Date: 20041020
  Transmission Date: 20050328
  Serious: Yes (Other)
  Sender: FDA-Public Use
  Company Number: PHEH2004US11518

PATIENT
  Sex: Female
  Weight: 50.8 kg

DRUGS (1)
  1. ZELNORM [Suspect]
     Dosage: SEE IMAGE

REACTIONS (4)
  - DECREASED APPETITE [None]
  - DEPRESSED MOOD [None]
  - SOMNOLENCE [None]
  - UNEXPECTED THERAPEUTIC DRUG EFFECT [None]
